FAERS Safety Report 9462272 (Version 1)
Quarter: 2013Q3

REPORT INFORMATION
  Report Type: Spontaneous
  Country: US (occurrence: US)
  Receive Date: 20130816
  Receipt Date: 20130816
  Transmission Date: 20140515
  Serious: Yes (Death)
  Sender: FDA-Public Use
  Company Number: US-GLAXOSMITHKLINE-B0915721A

PATIENT
  Age: 6 Year
  Sex: 0

DRUGS (1)
  1. BUPROPION [Suspect]
     Route: 065

REACTIONS (3)
  - Convulsion [Unknown]
  - Toxicity to various agents [Unknown]
  - Death [Fatal]
